FAERS Safety Report 5593571-3 (Version None)
Quarter: 2008Q1

REPORT INFORMATION
  Report Type: 
  Country: None (occurrence: None)
  Receive Date: 20080116
  Receipt Date: 20080109
  Transmission Date: 20080703
  Serious: Yes (Death)
  Sender: FDA-Public Use
  Company Number: FR-BRISTOL-MYERS SQUIBB COMPANY-14036222

PATIENT
  Age: 23 Year
  Sex: Male

DRUGS (19)
  1. SPRYCEL [Suspect]
     Indication: ACUTE MYELOID LEUKAEMIA
     Route: 048
     Dates: start: 20061124, end: 20070613
  2. ZELITREX [Concomitant]
  3. NEORAL [Concomitant]
  4. HEPARIN [Concomitant]
  5. CASPOFUNGIN ACETATE [Concomitant]
  6. INSULIN [Concomitant]
  7. MOPRAL [Concomitant]
  8. DITROPAN [Concomitant]
  9. AMLOR [Concomitant]
  10. SECTRAL [Concomitant]
  11. SPASFON [Concomitant]
  12. FORTUM [Concomitant]
  13. MORPHINE [Concomitant]
  14. EXACYL [Concomitant]
  15. LYRICA [Concomitant]
  16. PENTACARINAT [Concomitant]
  17. CIPROFLOXACIN HCL [Concomitant]
  18. RAPAMYCIN [Concomitant]
  19. RAPAMYCIN [Concomitant]

REACTIONS (1)
  - MYOCARDIAL INFARCTION [None]
